FAERS Safety Report 14457336 (Version 2)
Quarter: 2018Q2

REPORT INFORMATION
  Report Type: Spontaneous
  Country: US (occurrence: US)
  Receive Date: 20180130
  Receipt Date: 20180418
  Transmission Date: 20180711
  Serious: Yes (Other)
  Sender: FDA-Public Use
  Company Number: US-UCBSA-2018002276

PATIENT
  Sex: Female
  Weight: 54 kg

DRUGS (6)
  1. VITAMIN B1 [Concomitant]
     Active Substance: THIAMINE HYDROCHLORIDE
     Indication: PRODUCT USED FOR UNKNOWN INDICATION
  2. KEPPRA XR [Suspect]
     Active Substance: LEVETIRACETAM
     Dosage: 500 MG, 4X/DAY (QID)
     Dates: start: 201801
  3. TYLENOL WITH CODEINE [Concomitant]
     Active Substance: ACETAMINOPHEN\CODEINE PHOSPHATE
     Indication: PRODUCT USED FOR UNKNOWN INDICATION
  4. VIMPAT [Concomitant]
     Active Substance: LACOSAMIDE
     Indication: PRODUCT USED FOR UNKNOWN INDICATION
     Dosage: 100 MG, 2X/DAY (BID)
  5. KEPPRA XR [Suspect]
     Active Substance: LEVETIRACETAM
     Indication: SEIZURE
     Dosage: 500 MG, 5X/DAY
     Dates: start: 2009
  6. VITAMIN D [Concomitant]
     Active Substance: CHOLECALCIFEROL
     Indication: PRODUCT USED FOR UNKNOWN INDICATION

REACTIONS (7)
  - Nausea [Unknown]
  - Decreased appetite [Recovering/Resolving]
  - Intentional product misuse [Unknown]
  - Off label use [Unknown]
  - Intestinal haemorrhage [Not Recovered/Not Resolved]
  - Nasal congestion [Not Recovered/Not Resolved]
  - Abdominal discomfort [Unknown]

NARRATIVE: CASE EVENT DATE: 2009
